FAERS Safety Report 5142470-X (Version None)
Quarter: 2006Q4

REPORT INFORMATION
  Report Type: 
  Country: None (occurrence: None)
  Receive Date: 20061030
  Receipt Date: 20061030
  Transmission Date: 20070319
  Serious: Yes (Hospitalization)
  Sender: FDA-Public Use
  Company Number: None

PATIENT
  Age: 59 Year
  Sex: Female
  Weight: 107.9 kg

DRUGS (3)
  1. CETUXIMAB (CETUXIMAB) [Suspect]
     Indication: ADENOCARCINOMA PANCREAS
     Dosage: 810 MG I.V.
     Route: 042
     Dates: start: 20060829, end: 20060829
  2. GEMCITABINE [Suspect]
     Indication: ADENOCARCINOMA PANCREAS
     Dosage: 2110 MG I.V.
     Route: 042
     Dates: start: 20060829, end: 20060829
  3. BEVACIZUMAB (BEVACIZUMAB) [Suspect]
     Indication: ADENOCARCINOMA PANCREAS
     Dosage: 1080 MG I.V.
     Route: 042
     Dates: start: 20060828, end: 20060829

REACTIONS (10)
  - ALANINE AMINOTRANSFERASE INCREASED [None]
  - ASPARTATE AMINOTRANSFERASE INCREASED [None]
  - BLOOD ALKALINE PHOSPHATASE INCREASED [None]
  - DEHYDRATION [None]
  - DRUG DISPENSING ERROR [None]
  - HYPERBILIRUBINAEMIA [None]
  - INCORRECT DOSE ADMINISTERED [None]
  - METASTASIS [None]
  - PULMONARY EMBOLISM [None]
  - THROMBOCYTOPENIA [None]
